FAERS Safety Report 9663283 (Version 1)
Quarter: 2013Q4

REPORT INFORMATION
  Report Type: Report from Study
  Country: AR (occurrence: AR)
  Receive Date: 20131101
  Receipt Date: 20131101
  Transmission Date: 20140711
  Serious: Yes (Hospitalization)
  Sender: FDA-Public Use
  Company Number: AR-ROCHE-1295143

PATIENT
  Sex: Female

DRUGS (1)
  1. RANIBIZUMAB [Suspect]
     Indication: DIABETIC EYE DISEASE
     Route: 050
     Dates: start: 201309

REACTIONS (3)
  - Abdominal pain upper [Recovered/Resolved]
  - Blood glucose decreased [Recovered/Resolved]
  - Depression [Recovering/Resolving]
